FAERS Safety Report 8620734-2 (Version None)
Quarter: 2012Q3

REPORT INFORMATION
  Report Type: 
  Country: None (occurrence: None)
  Receive Date: 20120824
  Receipt Date: 20120818
  Transmission Date: 20120928
  Serious: Yes (Other)
  Sender: FDA-Public Use
  Company Number: US-US-EMD SERONO, INC.-7155923

PATIENT
  Sex: Female

DRUGS (1)
  1. REBIF [Suspect]
     Indication: PRODUCT USED FOR UNKNOWN INDICATION
     Dates: start: 20050617

REACTIONS (5)
  - PAIN IN EXTREMITY [None]
  - BLOOD PRESSURE INCREASED [None]
  - RESTLESSNESS [None]
  - PAIN [None]
  - CHILLS [None]
